FAERS Safety Report 6945629-1 (Version None)
Quarter: 2010Q3

REPORT INFORMATION
  Report Type: 
  Country: None (occurrence: None)
  Receive Date: 20100827
  Receipt Date: 20100823
  Transmission Date: 20110219
  Serious: Yes (Hospitalization, Disabling, Other)
  Sender: FDA-Public Use
  Company Number: US-MERCK-1005USA00664

PATIENT
  Age: 58 Year
  Sex: Female
  Weight: 63 kg

DRUGS (5)
  1. FOSAMAX [Suspect]
     Indication: OSTEOPOROSIS
     Route: 048
     Dates: start: 19990101, end: 20060101
  2. FOSAMAX [Suspect]
     Route: 048
     Dates: start: 20070101, end: 20100101
  3. CALCIUM (UNSPECIFIED) [Concomitant]
     Route: 065
  4. VITAMIN D (UNSPECIFIED) [Concomitant]
     Route: 065
  5. ACTONEL [Suspect]
     Route: 065
     Dates: start: 20100101, end: 20100101

REACTIONS (3)
  - FALL [None]
  - FEMUR FRACTURE [None]
  - HUMERUS FRACTURE [None]
